FAERS Safety Report 21034159 (Version 1)
Quarter: 2022Q2

REPORT INFORMATION
  Report Type: Spontaneous
  Country: US (occurrence: None)
  Receive Date: 20220630
  Receipt Date: 20220630
  Transmission Date: 20220720
  Serious: Yes (Hospitalization)
  Sender: FDA-Public Use
  Company Number: None

PATIENT
  Sex: Female

DRUGS (1)
  1. OPSUMIT [Suspect]
     Active Substance: MACITENTAN
     Indication: Pulmonary arterial hypertension
     Dosage: 1 TABLET DAILY BY MOUTH
     Route: 048
     Dates: start: 202111

REACTIONS (3)
  - Weight decreased [None]
  - Decreased appetite [None]
  - Therapy interrupted [None]
